FAERS Safety Report 10978173 (Version 1)
Quarter: 2015Q1

REPORT INFORMATION
  Report Type: Spontaneous
  Country: US (occurrence: None)
  Receive Date: 20150226
  Receipt Date: 20150226
  Transmission Date: 20150721
  Serious: No
  Sender: FDA-Public Use
  Company Number: TPA2009A02418

PATIENT
  Age: 81 Year
  Sex: Male
  Weight: 68.04 kg

DRUGS (8)
  1. ULORIC [Suspect]
     Active Substance: FEBUXOSTAT
     Indication: GOUTY ARTHRITIS
  2. ISOSORBIDE [Concomitant]
     Active Substance: ISOSORBIDE
  3. TENORMIN [Concomitant]
     Active Substance: ATENOLOL
  4. AVODART (DUTASTERIDE) [Concomitant]
  5. RANEXA (RANOLAZINE) [Concomitant]
  6. PLAVIX [Concomitant]
     Active Substance: CLOPIDOGREL BISULFATE
  7. LIPITOR [Concomitant]
     Active Substance: ATORVASTATIN CALCIUM
  8. DOXAZOSIN [Concomitant]
     Active Substance: DOXAZOSIN\DOXAZOSIN MESYLATE

REACTIONS (1)
  - Atrial flutter [None]

NARRATIVE: CASE EVENT DATE: 20090817
